FAERS Safety Report 10404107 (Version 1)
Quarter: 2014Q1

REPORT INFORMATION
  Report Type: Spontaneous
  Country: US (occurrence: None)
  Receive Date: 20130815
  Receipt Date: 20130815
  Transmission Date: 20141002
  Serious: Yes (Other)
  Sender: FDA-Public Use
  Company Number: ADR-2013-00143

PATIENT
  Age: 34 Year
  Sex: Female

DRUGS (1)
  1. LIORESAL INTRATHECAL (BACLOFEN INJECTION) 2000 MCGIML [Suspect]
     Indication: MUSCLE SPASTICITY
     Dosage: FLEXIBLE DOSE
     Route: 037
     Dates: start: 20120313

REACTIONS (2)
  - Muscle spasticity [None]
  - Underdose [None]
